FAERS Safety Report 23706028 (Version 1)
Quarter: 2024Q2

REPORT INFORMATION
  Report Type: Spontaneous
  Country: US (occurrence: None)
  Receive Date: 20240403
  Receipt Date: 20240403
  Transmission Date: 20240715
  Serious: Yes (Death, Life-Threatening)
  Sender: FDA-Public Use
  Company Number: None

PATIENT
  Age: 84 Year
  Sex: Female
  Weight: 49.5 kg

DRUGS (1)
  1. FENTANYL [Suspect]
     Active Substance: FENTANYL\FENTANYL CITRATE

REACTIONS (6)
  - Myocardial infarction [None]
  - Pain [None]
  - Shock [None]
  - Emotional distress [None]
  - Inadequate analgesia [None]
  - Drug monitoring procedure not performed [None]

NARRATIVE: CASE EVENT DATE: 20170930
